FAERS Safety Report 24239815 (Version 1)
Quarter: 2024Q3

REPORT INFORMATION
  Report Type: Spontaneous
  Country: US (occurrence: US)
  Receive Date: 20240822
  Receipt Date: 20240822
  Transmission Date: 20241016
  Serious: Yes (Hospitalization, Other)
  Sender: BAUSCH AND LOMB
  Company Number: US-BAUSCH-BL-2024-012519

PATIENT
  Sex: Female

DRUGS (24)
  1. LORAZEPAM [Suspect]
     Active Substance: LORAZEPAM
     Indication: Antipsychotic therapy
     Dosage: 1-4.5 MG/DAY FOR 15 DAYS
     Route: 065
     Dates: end: 2011
  2. LORAZEPAM [Suspect]
     Active Substance: LORAZEPAM
     Dosage: 0.5-2 MG/DAY FOR 32 MONTHS AS NEEDED
     Route: 065
     Dates: end: 2011
  3. QUETIAPINE [Suspect]
     Active Substance: QUETIAPINE
     Indication: Antipsychotic therapy
     Dosage: 50-400 MG/DAY FOR 16 MONTHS
     Route: 065
     Dates: end: 2011
  4. ZIPRASIDONE [Suspect]
     Active Substance: ZIPRASIDONE
     Indication: Antipsychotic therapy
     Dosage: 120-200 MG/DAY FOR 42 MONTHS
     Route: 065
     Dates: end: 2011
  5. OLANZAPINE [Suspect]
     Active Substance: OLANZAPINE
     Indication: Antipsychotic therapy
     Dosage: 5-15 MG/DAY FOR 8 MONTHS
     Route: 065
     Dates: end: 2011
  6. OLANZAPINE [Suspect]
     Active Substance: OLANZAPINE
     Dosage: 5-10 MG/DAY FOR 7 MONTHS AS NEEDED
     Route: 065
     Dates: end: 2011
  7. RISPERIDONE [Suspect]
     Active Substance: RISPERIDONE
     Indication: Antipsychotic therapy
     Dosage: 0.5-0.75 MG/DAY FOR 12 MONTHS
     Route: 065
     Dates: end: 2011
  8. ARIPIPRAZOLE [Suspect]
     Active Substance: ARIPIPRAZOLE
     Indication: Antipsychotic therapy
     Dosage: 5-10 MG/DAY
     Route: 065
     Dates: end: 2011
  9. VALPROIC ACID [Suspect]
     Active Substance: VALPROIC ACID
     Indication: Antipsychotic therapy
     Dosage: 1,250-1,500 MG/DAY FOR 11 MONTHS
     Route: 065
     Dates: end: 2011
  10. OXCARBAZEPINE [Suspect]
     Active Substance: OXCARBAZEPINE
     Indication: Antipsychotic therapy
     Dosage: 1,500-3,000 MG/DAY FOR 2 MONTHS
     Route: 065
     Dates: end: 2011
  11. CARBAMAZEPINE [Suspect]
     Active Substance: CARBAMAZEPINE
     Indication: Antipsychotic therapy
     Dosage: 200-1,200 MG/DAY FOR 4 MONTHS
     Route: 065
     Dates: end: 2011
  12. AMPHETAMINE [Suspect]
     Active Substance: AMPHETAMINE
     Indication: Antipsychotic therapy
     Route: 065
     Dates: end: 2011
  13. DEXTROAMPHETAMINE [Suspect]
     Active Substance: DEXTROAMPHETAMINE
     Indication: Antipsychotic therapy
     Route: 065
     Dates: end: 2011
  14. METHYLPHENIDATE [Suspect]
     Active Substance: METHYLPHENIDATE
     Indication: Antipsychotic therapy
     Route: 065
     Dates: end: 2011
  15. CLONIDINE [Suspect]
     Active Substance: CLONIDINE
     Indication: Antipsychotic therapy
     Route: 065
     Dates: end: 2011
  16. GUANFACINE [Suspect]
     Active Substance: GUANFACINE
     Indication: Antipsychotic therapy
     Dosage: 0.5-2.5 MG/DAY FOR 5 MONTHS
     Route: 065
     Dates: end: 2011
  17. FLUOXETINE [Suspect]
     Active Substance: FLUOXETINE HYDROCHLORIDE
     Indication: Antipsychotic therapy
     Dosage: 10-120 MG/DAY FOR 13 MONTHS
     Route: 065
     Dates: end: 2011
  18. CITALOPRAM [Suspect]
     Active Substance: CITALOPRAM\CITALOPRAM HYDROBROMIDE
     Indication: Antipsychotic therapy
     Dosage: 70-120 MG/DAY FOR 9 MONTHS
     Route: 065
     Dates: end: 2011
  19. FLUVOXAMINE [Suspect]
     Active Substance: FLUVOXAMINE
     Indication: Antipsychotic therapy
     Dosage: 25-125 MG/DAY FOR 40 MONTHS
     Route: 065
     Dates: end: 2011
  20. BUSPIRONE [Suspect]
     Active Substance: BUSPIRONE HYDROCHLORIDE
     Indication: Antipsychotic therapy
     Dosage: 5-22.5 MG/DAY FOR 16 MONTHS
     Route: 065
     Dates: end: 2011
  21. NALTREXONE [Suspect]
     Active Substance: NALTREXONE
     Indication: Antipsychotic therapy
     Dosage: 25-100 MG/DAY FOR 4 MONTHS
     Route: 065
     Dates: end: 2011
  22. ALPRAZOLAM [Suspect]
     Active Substance: ALPRAZOLAM
     Indication: Antipsychotic therapy
     Dosage: 0.5-2 MG PER DAY FOR 3 MONTHS
     Route: 065
     Dates: end: 2011
  23. ALPRAZOLAM [Suspect]
     Active Substance: ALPRAZOLAM
     Dosage: AS NEEDED
     Route: 065
     Dates: end: 2011
  24. GABAPENTIN [Suspect]
     Active Substance: GABAPENTIN
     Indication: Antipsychotic therapy
     Route: 065
     Dates: end: 2011

REACTIONS (3)
  - Self-destructive behaviour [Recovering/Resolving]
  - Aggression [Recovering/Resolving]
  - Drug ineffective [Unknown]
